FAERS Safety Report 8255723-3 (Version None)
Quarter: 2012Q2

REPORT INFORMATION
  Report Type: 
  Country: None (occurrence: None)
  Receive Date: 20120403
  Receipt Date: 20120403
  Transmission Date: 20120825
  Serious: Yes (Other)
  Sender: FDA-Public Use
  Company Number: None

PATIENT
  Sex: Female
  Weight: 58.059 kg

DRUGS (1)
  1. DROSPIRENONE AND ETHINYL ESTRADIOL [Suspect]
     Indication: METRORRHAGIA
     Dosage: 3MG/0.03MG
     Route: 048
     Dates: start: 20070101, end: 20120331

REACTIONS (4)
  - HAEMATOCHEZIA [None]
  - MUCOUS STOOLS [None]
  - INFLAMMATORY BOWEL DISEASE [None]
  - RASH [None]
